FAERS Safety Report 12484927 (Version 1)
Quarter: 2016Q2

REPORT INFORMATION
  Report Type: Spontaneous
  Country: US (occurrence: US)
  Receive Date: 20160621
  Receipt Date: 20160621
  Transmission Date: 20160815
  Serious: No
  Sender: FDA-Public Use
  Company Number: US-GLAXOSMITHKLINE-US2016GSK082798

PATIENT
  Age: 55 Year
  Sex: Female

DRUGS (1)
  1. TANZEUM [Suspect]
     Active Substance: ALBIGLUTIDE
     Indication: PRODUCT USED FOR UNKNOWN INDICATION
     Dosage: 50 MG, WE
     Dates: start: 201604

REACTIONS (9)
  - Device use error [Unknown]
  - Device leakage [Unknown]
  - Underdose [Unknown]
  - Urticaria [Unknown]
  - Condition aggravated [Unknown]
  - Drug dose omission [Unknown]
  - Rash [Unknown]
  - Accidental exposure to product [Unknown]
  - Pruritus [Unknown]

NARRATIVE: CASE EVENT DATE: 201604
